FAERS Safety Report 20692145 (Version 1)
Quarter: 2022Q2

REPORT INFORMATION
  Report Type: Spontaneous
  Country: MY (occurrence: MY)
  Receive Date: 20220409
  Receipt Date: 20220409
  Transmission Date: 20220721
  Serious: Yes (Life-Threatening)
  Sender: FDA-Public Use
  Company Number: MY-NOVARTISPH-NVSC2022MY080614

PATIENT
  Age: 58 Year
  Sex: Male

DRUGS (6)
  1. SACUBITRIL\VALSARTAN [Interacting]
     Active Substance: SACUBITRIL\VALSARTAN
     Indication: Cardiac failure acute
     Dosage: 1 DOSAGE FORM, BID (49 MG/51 MG)
     Route: 065
     Dates: start: 20210107, end: 20210114
  2. ATORVASTATIN [Interacting]
     Active Substance: ATORVASTATIN
     Indication: Coronary artery disease
     Dosage: 80 MG, QD
     Route: 065
     Dates: end: 20210114
  3. ASPIRIN [Concomitant]
     Active Substance: ASPIRIN
     Indication: Coronary artery disease
     Dosage: 100 MG, QD
     Route: 065
  4. PERINDOPRIL [Concomitant]
     Active Substance: PERINDOPRIL
     Indication: Coronary artery disease
     Dosage: 4 MG, QD
     Route: 065
  5. BISOPROLOL [Concomitant]
     Active Substance: BISOPROLOL
     Indication: Coronary artery disease
     Dosage: 5 MG, QD
     Route: 065
  6. SPIRONOLACTONE [Concomitant]
     Active Substance: SPIRONOLACTONE
     Indication: Coronary artery disease
     Dosage: 25 MG, QD
     Route: 065

REACTIONS (2)
  - Rhabdomyolysis [Recovered/Resolved]
  - Drug interaction [Unknown]

NARRATIVE: CASE EVENT DATE: 20210113
